FAERS Safety Report 6162227-0 (Version None)
Quarter: 2009Q2

REPORT INFORMATION
  Report Type: 
  Country: None (occurrence: None)
  Receive Date: 20090421
  Receipt Date: 20090413
  Transmission Date: 20091009
  Serious: Yes (Life-Threatening, Hospitalization)
  Sender: FDA-Public Use
  Company Number: US-JNJFOC-20090403107

PATIENT
  Age: 39 Year
  Sex: Male

DRUGS (6)
  1. ULTRAM [Suspect]
     Indication: SUICIDE ATTEMPT
     Route: 065
  2. CYCLOBENZAPRINE [Suspect]
     Indication: SUICIDE ATTEMPT
     Route: 065
  3. ALCOHOL [Suspect]
     Indication: DRUG USE FOR UNKNOWN INDICATION
     Route: 048
  4. BENZODIAZEPINE [Suspect]
     Indication: DRUG USE FOR UNKNOWN INDICATION
     Route: 065
  5. TRICYCLIC ANTIDEPRESSANT [Suspect]
     Indication: DRUG USE FOR UNKNOWN INDICATION
     Route: 065
  6. PHENCYCLIDINE [Suspect]
     Indication: DRUG USE FOR UNKNOWN INDICATION
     Route: 065

REACTIONS (3)
  - OVERDOSE [None]
  - RESPIRATORY DEPRESSION [None]
  - SUICIDE ATTEMPT [None]
